FAERS Safety Report 13072809 (Version 2)
Quarter: 2018Q4

REPORT INFORMATION
  Report Type: Spontaneous
  Country: US (occurrence: US)
  Receive Date: 20161229
  Receipt Date: 20181005
  Transmission Date: 20190204
  Serious: Yes (Other)
  Sender: FDA-Public Use
  Company Number: US-SA-2016SA126189

PATIENT
  Age: 44 Year
  Sex: Female
  Weight: 61.23 kg

DRUGS (4)
  1. TAXOTERE [Suspect]
     Active Substance: DOCETAXEL
     Indication: BREAST CANCER FEMALE
     Dosage: 124
     Route: 042
     Dates: start: 20100304, end: 20100304
  2. CYTOXAN [Concomitant]
     Active Substance: CYCLOPHOSPHAMIDE
     Dosage: UNK UNK,Q3W
     Route: 065
     Dates: start: 20100506, end: 20100506
  3. CYTOXAN [Concomitant]
     Active Substance: CYCLOPHOSPHAMIDE
     Dosage: UNK UNK,Q3W
     Route: 065
     Dates: start: 20100304, end: 20100304
  4. TAXOTERE [Suspect]
     Active Substance: DOCETAXEL
     Dosage: 124
     Route: 042
     Dates: start: 20100506, end: 20100506

REACTIONS (2)
  - Psychological trauma [Unknown]
  - Alopecia [Not Recovered/Not Resolved]

NARRATIVE: CASE EVENT DATE: 201003
